FAERS Safety Report 6065807-6 (Version None)
Quarter: 2009Q1

REPORT INFORMATION
  Report Type: 
  Country: None (occurrence: None)
  Receive Date: 20090205
  Receipt Date: 20090105
  Transmission Date: 20090719
  Serious: No
  Sender: FDA-Public Use
  Company Number: US-BAYER-200910147NA

PATIENT
  Age: 66 Year
  Sex: Female

DRUGS (3)
  1. AVELOX [Suspect]
     Indication: UNEVALUABLE EVENT
  2. LASIX [Concomitant]
  3. POTASSIUM CHLORIDE [Concomitant]

REACTIONS (2)
  - NO ADVERSE EVENT [None]
  - OEDEMA PERIPHERAL [None]
